FAERS Safety Report 5290537-8 (Version None)
Quarter: 2007Q2

REPORT INFORMATION
  Report Type: 
  Country: None (occurrence: None)
  Receive Date: 20070404
  Receipt Date: 20070404
  Transmission Date: 20071010
  Serious: No
  Sender: FDA-Public Use
  Company Number: None

PATIENT

DRUGS (2)
  1. SWEEN FORDUSTIN BODY POWDER [Suspect]
     Dosage: POWDER  85 G
  2. SWEEN MICRO-GUARD ANTIFUNGAL POWDER [Suspect]
     Dosage: POWDER  85 G

REACTIONS (1)
  - MEDICATION ERROR [None]
